FAERS Safety Report 7306264-9 (Version None)
Quarter: 2011Q1

REPORT INFORMATION
  Report Type: 
  Country: None (occurrence: None)
  Receive Date: 20110222
  Receipt Date: 20110209
  Transmission Date: 20110831
  Serious: Yes (Hospitalization)
  Sender: FDA-Public Use
  Company Number: PHHY2010JP82818

PATIENT
  Sex: Male
  Weight: 76 kg

DRUGS (14)
  1. AFINITOR [Suspect]
     Indication: METASTATIC RENAL CELL CARCINOMA
     Dosage: 10 MG, DAILY
     Route: 048
     Dates: start: 20100527, end: 20100531
  2. ZYLORIC ^FRESENIUS^ [Concomitant]
     Dosage: 800 MG, UNK
     Route: 048
     Dates: start: 20090302
  3. CARDENALIN [Concomitant]
     Dosage: 2 MG, UNK
     Route: 048
     Dates: start: 20090302
  4. CAPTOPRIL [Concomitant]
     Dosage: 4 MG, UNK
     Route: 048
     Dates: start: 20090302
  5. MYSLEE [Concomitant]
     Dosage: 5 MG, UNK
     Route: 048
     Dates: start: 20090302
  6. INTERFERON ALFA [Concomitant]
     Dosage: 3000000 IU, UNK
     Dates: start: 20090603, end: 20100513
  7. TENORMIN [Concomitant]
     Dosage: 50 MG, UNK
     Route: 048
     Dates: start: 20090302
  8. TAGAMET [Concomitant]
     Dosage: 100 MG, UNK
     Route: 048
     Dates: start: 20090302
  9. ADALAT [Concomitant]
     Dosage: 20 MG, UNK
     Route: 048
     Dates: start: 20090302
  10. VOLTAREN [Concomitant]
     Dosage: 25 MG, UNK
     Route: 048
     Dates: start: 20090302
  11. LASIX [Concomitant]
     Dosage: 40 MG, UNK
     Route: 048
     Dates: start: 20090302
  12. AFINITOR [Suspect]
     Dosage: 5 MG,DAILY
     Route: 048
     Dates: start: 20100602
  13. AFINITOR [Suspect]
     Dosage: 10 MG, DAILY
     Route: 048
     Dates: start: 20100608
  14. ASPIRIN [Concomitant]
     Dosage: 10 MG/H, UNK
     Route: 048
     Dates: start: 20090302

REACTIONS (1)
  - HERPES ZOSTER [None]
